FAERS Safety Report 9242724 (Version 1)
Quarter: 2013Q2

REPORT INFORMATION
  Report Type: Spontaneous
  Country: GB (occurrence: GB)
  Receive Date: 20130419
  Receipt Date: 20130419
  Transmission Date: 20140414
  Serious: Yes (Other)
  Sender: FDA-Public Use
  Company Number: GB-TEVA-397697ISR

PATIENT
  Age: 39 Year
  Sex: Female
  Weight: 61 kg

DRUGS (9)
  1. PREDNISOLONE [Suspect]
     Indication: ASTHMA
     Route: 048
     Dates: start: 20121111, end: 20121114
  2. CLENIL MODULITE [Suspect]
     Indication: ASTHMA
     Dosage: 800 MICROGRAM DAILY; AFTER VTE WAS REDUCED GRADUALLY UNTIL STOP DATE
     Route: 055
     Dates: start: 20121107, end: 20130101
  3. SALBUTAMOL [Concomitant]
     Route: 055
  4. CLARITHROMYCIN [Concomitant]
  5. CO-AMOXICLAV [Concomitant]
  6. AVAMYS [Concomitant]
  7. FOLIC ACID [Concomitant]
  8. FERROUS FUMARATE [Concomitant]
  9. FLUCONAZOLE [Concomitant]

REACTIONS (5)
  - Pain in extremity [Recovered/Resolved with Sequelae]
  - Deep vein thrombosis [Recovered/Resolved with Sequelae]
  - Blood glucose increased [Recovered/Resolved]
  - Polyuria [Unknown]
  - Dehydration [Unknown]
